FAERS Safety Report 9235942 (Version 1)
Quarter: 2013Q2

REPORT INFORMATION
  Report Type: Spontaneous
  Country: US (occurrence: None)
  Receive Date: 20130416
  Receipt Date: 20130416
  Transmission Date: 20140414
  Serious: No
  Sender: FDA-Public Use
  Company Number: None

PATIENT
  Sex: Male
  Weight: 96.16 kg

DRUGS (2)
  1. GABAPENTIN [Suspect]
     Indication: MYOFASCIAL PAIN SYNDROME
     Dates: start: 1999, end: 2005
  2. GABAPENTIN [Suspect]
     Indication: HEADACHE
     Dates: start: 1999, end: 2005

REACTIONS (2)
  - Paralysis [None]
  - Product substitution issue [None]
